FAERS Safety Report 5705520-5 (Version None)
Quarter: 2008Q2

REPORT INFORMATION
  Report Type: 
  Country: None (occurrence: None)
  Receive Date: 20080415
  Receipt Date: 20080407
  Transmission Date: 20081010
  Serious: Yes (Hospitalization, Other)
  Sender: FDA-Public Use
  Company Number: FR-ABBOTT-08P-056-0445576-00

PATIENT
  Age: 38 Year
  Sex: Female
  Weight: 72 kg

DRUGS (5)
  1. SEVORANE LIQUID FOR INHALATION [Suspect]
     Indication: ANAESTHESIA
     Route: 055
     Dates: start: 20050329, end: 20050329
  2. DESFLURANE [Suspect]
     Indication: ANAESTHESIA
     Route: 055
     Dates: start: 20070913, end: 20070913
  3. CEFAZOLIN [Suspect]
     Indication: DRUG USE FOR UNKNOWN INDICATION
     Route: 042
     Dates: start: 20050329, end: 20050329
  4. CEFAZOLIN [Suspect]
     Route: 042
     Dates: start: 20070913, end: 20070913
  5. URSODESOXYCHOLIC ACID [Concomitant]
     Indication: PRURITUS
     Dates: start: 20071001, end: 20071225

REACTIONS (12)
  - ALANINE AMINOTRANSFERASE INCREASED [None]
  - ASPARTATE AMINOTRANSFERASE INCREASED [None]
  - BLOOD ALKALINE PHOSPHATASE INCREASED [None]
  - CHOLECYSTITIS CHRONIC [None]
  - CYTOLYTIC HEPATITIS [None]
  - GAMMA-GLUTAMYLTRANSFERASE INCREASED [None]
  - HEPATITIS [None]
  - JAUNDICE [None]
  - JAUNDICE CHOLESTATIC [None]
  - NEPHROLITHIASIS [None]
  - PRURIGO [None]
  - PRURITUS [None]
